FAERS Safety Report 4580425-4 (Version None)
Quarter: 2005Q1

REPORT INFORMATION
  Report Type: 
  Country: None (occurrence: None)
  Receive Date: 20050214
  Receipt Date: 20040121
  Transmission Date: 20050727
  Serious: No
  Sender: FDA-Public Use
  Company Number: US-GLAXOSMITHKLINE-A0494478A

PATIENT
  Age: 28 Year
  Sex: Female

DRUGS (3)
  1. LAMICTAL [Suspect]
     Indication: EPILEPSY
     Route: 048
  2. ZYPREXA [Concomitant]
  3. TEGRETOL [Concomitant]

REACTIONS (3)
  - HEADACHE [None]
  - PYREXIA [None]
  - SWELLING FACE [None]
